FAERS Safety Report 9341774 (Version 1)
Quarter: 2013Q2

REPORT INFORMATION
  Report Type: Spontaneous
  Country: US (occurrence: None)
  Receive Date: 20130606
  Receipt Date: 20130606
  Transmission Date: 20140414
  Serious: Yes (Other)
  Sender: FDA-Public Use
  Company Number: SYM-2013-04263

PATIENT
  Age: 69 Year
  Sex: Female

DRUGS (5)
  1. BUPROPION HYDROCHLORIDE [Suspect]
     Indication: DEPRESSION
     Route: 048
     Dates: start: 20130427, end: 20130510
  2. CLONAZEPAM(CLONAZEPAM) (CLONAZEPAM) [Concomitant]
  3. GABAPENTIN(GABAPENTIN) (GABAPENTIN) [Concomitant]
  4. DIOVAN(VALSARTAN) (VALSARTAN) [Concomitant]
  5. PRAVASTATIN(PRAVASTATIN) (PRAVASTATIN) [Concomitant]

REACTIONS (1)
  - Erythema multiforme [None]
